FAERS Safety Report 19950863 (Version 1)
Quarter: 2021Q4

REPORT INFORMATION
  Report Type: Spontaneous
  Country: ES (occurrence: ES)
  Receive Date: 20211013
  Receipt Date: 20211013
  Transmission Date: 20220303
  Serious: Yes (Hospitalization)
  Sender: FDA-Public Use
  Company Number: None

PATIENT
  Age: 59 Year
  Sex: Male
  Weight: 64 kg

DRUGS (2)
  1. FUROSEMIDE [Interacting]
     Active Substance: FUROSEMIDE
     Indication: Cirrhosis alcoholic
     Dosage: 40 MILLIGRAM, QD
     Route: 048
     Dates: start: 20191218
  2. AMILORIDE HYDROCHLORIDE\HYDROCHLOROTHIAZIDE [Interacting]
     Active Substance: AMILORIDE HYDROCHLORIDE\HYDROCHLOROTHIAZIDE
     Indication: Cirrhosis alcoholic
     Dosage: 1 DOSAGE FORM, QD
     Route: 048
     Dates: start: 20200127

REACTIONS (2)
  - Hyponatraemia [Recovered/Resolved]
  - Drug interaction [Unknown]

NARRATIVE: CASE EVENT DATE: 20200202
